FAERS Safety Report 12572514 (Version 1)
Quarter: 2016Q3

REPORT INFORMATION
  Report Type: Report from Study
  Country: US (occurrence: US)
  Receive Date: 20160719
  Receipt Date: 20160719
  Transmission Date: 20161109
  Serious: No
  Sender: FDA-Public Use
  Company Number: US-AMGEN-USASL2016092336

PATIENT
  Age: 42 Year
  Sex: Female

DRUGS (1)
  1. ENBREL [Suspect]
     Active Substance: ETANERCEPT
     Indication: PSORIATIC ARTHROPATHY
     Dosage: 50 MG, QWK
     Route: 065

REACTIONS (7)
  - Condition aggravated [Unknown]
  - Injection site pain [Unknown]
  - Drug dose omission [Unknown]
  - Pain [Recovered/Resolved]
  - Peripheral swelling [Unknown]
  - Pain in extremity [Unknown]
  - Finger deformity [Unknown]

NARRATIVE: CASE EVENT DATE: 20160713
